FAERS Safety Report 13049520 (Version 1)
Quarter: 2016Q4

REPORT INFORMATION
  Report Type: Spontaneous
  Country: US (occurrence: US)
  Receive Date: 20161221
  Receipt Date: 20161221
  Transmission Date: 20170207
  Serious: No
  Sender: FDA-Public Use
  Company Number: US-ELI_LILLY_AND_COMPANY-US201612002401

PATIENT
  Age: 40 Year
  Sex: Male

DRUGS (3)
  1. TRESIBA [Concomitant]
     Active Substance: INSULIN DEGLUDEC
     Dosage: UNK, QD (BEFORE BED TIME)
  2. HUMALOG [Suspect]
     Active Substance: INSULIN LISPRO
     Dosage: 10 U, TID (10 UNITS PLUS A SLIDING SCALE IF GLUCOSE LEVELS ARE HIGH)
     Route: 065
     Dates: start: 201602
  3. HUMALOG [Suspect]
     Active Substance: INSULIN LISPRO
     Indication: TYPE 1 DIABETES MELLITUS
     Dosage: 10 U, TID (10 UNITS PLUS A SLIDING SCALE IF GLUCOSE LEVELS ARE HIGH)
     Route: 065
     Dates: start: 201602

REACTIONS (4)
  - Blood glucose increased [Unknown]
  - Blood glucose increased [Recovered/Resolved]
  - Drug dose omission [Recovered/Resolved]
  - Drug dose omission [Recovered/Resolved]

NARRATIVE: CASE EVENT DATE: 201608
